FAERS Safety Report 7932947-3 (Version None)
Quarter: 2011Q4

REPORT INFORMATION
  Report Type: 
  Country: None (occurrence: None)
  Receive Date: 20111122
  Receipt Date: 20111116
  Transmission Date: 20120403
  Serious: No
  Sender: FDA-Public Use
  Company Number: US-PFIZER INC-2011201966

PATIENT
  Sex: Female

DRUGS (2)
  1. XALATAN [Suspect]
     Indication: INTRAOCULAR PRESSURE TEST ABNORMAL
     Dosage: 1 DROP BOTH EYES QHS
     Route: 047
     Dates: start: 20080226, end: 20110915
  2. LATANOPROST [Suspect]
     Dosage: UNK

REACTIONS (1)
  - DRY EYE [None]
